FAERS Safety Report 20199024 (Version 1)
Quarter: 2021Q4

REPORT INFORMATION
  Report Type: Report from Study
  Country: US (occurrence: US)
  Receive Date: 20211217
  Receipt Date: 20211217
  Transmission Date: 20220303
  Serious: No
  Sender: FDA-Public Use
  Company Number: US-KYOWAKIRIN-2021BKK020980

PATIENT

DRUGS (1)
  1. GRANISETRON [Suspect]
     Active Substance: GRANISETRON
     Indication: Product used for unknown indication
     Dosage: UNKNOWN
     Route: 061
     Dates: start: 20211117

REACTIONS (2)
  - Pruritus [Unknown]
  - Product adhesion issue [Unknown]
